FAERS Safety Report 11252493 (Version 1)
Quarter: 2015Q3

REPORT INFORMATION
  Report Type: Spontaneous
  Country: US (occurrence: US)
  Receive Date: 20150708
  Receipt Date: 20150708
  Transmission Date: 20151125
  Serious: Yes (Life-Threatening, Congenital Anomaly)
  Sender: FDA-Public Use
  Company Number: US-ELI_LILLY_AND_COMPANY-US201406006583

PATIENT

DRUGS (1)
  1. PROZAC [Suspect]
     Active Substance: FLUOXETINE HYDROCHLORIDE
     Indication: PRODUCT USED FOR UNKNOWN INDICATION
     Route: 064

REACTIONS (11)
  - Mitral valve stenosis [Unknown]
  - Attention deficit/hyperactivity disorder [Unknown]
  - Ventricular hypoplasia [Unknown]
  - Shone complex [Unknown]
  - Aortic stenosis [Unknown]
  - Patent ductus arteriosus [Unknown]
  - Coarctation of the aorta [Unknown]
  - Hypoplastic left heart syndrome [Unknown]
  - Atrial septal defect [Unknown]
  - Ventricular septal defect [Unknown]
  - Foetal exposure during pregnancy [Recovered/Resolved]
